FAERS Safety Report 8340421-8 (Version None)
Quarter: 2012Q2

REPORT INFORMATION
  Report Type: 
  Country: None (occurrence: None)
  Receive Date: 20120507
  Receipt Date: 20120507
  Transmission Date: 20120825
  Serious: Yes (Life-Threatening)
  Sender: FDA-Public Use
  Company Number: None

PATIENT
  Age: 36 Year
  Sex: Female
  Weight: 74.842 kg

DRUGS (3)
  1. LAMOTRIGINE [Suspect]
     Indication: AFFECTIVE DISORDER
     Dosage: |DOSAGETEXT: 1 TABLET||STRENGTH: 25MG||FREQ: ONCE DAILY|
     Dates: start: 20110215, end: 20110218
  2. RISPERDAL [Interacting]
     Route: 048
  3. RISPERDAL [Suspect]
     Indication: BIPOLAR DISORDER
     Dosage: |DOSAGETEXT: 1/2 AT 7, 1 WHOLE AT BEDTIME||STRENGTH: 2 MG||FREQ: 1/2 AT 7PM THEN 1|
     Dates: start: 20110215, end: 20110218

REACTIONS (9)
  - PALPITATIONS [None]
  - HEART RATE INCREASED [None]
  - THIRST [None]
  - DISORIENTATION [None]
  - FEELING HOT [None]
  - PALLOR [None]
  - DEPRESSION [None]
  - FEELING ABNORMAL [None]
  - HEART RATE DECREASED [None]
